FAERS Safety Report 25544502 (Version 2)
Quarter: 2025Q3

REPORT INFORMATION
  Report Type: Spontaneous
  Country: US (occurrence: US)
  Receive Date: 20250711
  Receipt Date: 20250723
  Transmission Date: 20251021
  Serious: No
  Sender: VERTEX
  Company Number: US-VERTEX PHARMACEUTICALS-2025-011095

PATIENT
  Sex: Male

DRUGS (3)
  1. JOURNAVX [Suspect]
     Active Substance: SUZETRIGINE
     Indication: Pain
     Dosage: 02 TABLET (50MG SUZETRIGINE) AS LOADING DOSE
     Route: 048
     Dates: start: 202503, end: 202503
  2. JOURNAVX [Suspect]
     Active Substance: SUZETRIGINE
     Dosage: 50 MG BID AS MAINTENANCE DOSE
     Route: 048
     Dates: start: 202503, end: 2025
  3. JOURNAVX [Suspect]
     Active Substance: SUZETRIGINE
     Dosage: 50 MG, QD  (IN THE MORNING)
     Route: 048
     Dates: start: 2025

REACTIONS (3)
  - Abdominal discomfort [Recovered/Resolved]
  - Diarrhoea [Unknown]
  - Dry eye [Recovered/Resolved]

NARRATIVE: CASE EVENT DATE: 20250101
